FAERS Safety Report 9384502 (Version 1)
Quarter: 2013Q3

REPORT INFORMATION
  Report Type: Spontaneous
  Country: FR (occurrence: FR)
  Receive Date: 20130705
  Receipt Date: 20130705
  Transmission Date: 20140515
  Serious: No
  Sender: FDA-Public Use
  Company Number: FR-ROCHE-1245069

PATIENT
  Sex: Female

DRUGS (4)
  1. XOLAIR [Suspect]
     Indication: ASTHMA
     Route: 058
     Dates: start: 201101, end: 20120803
  2. SYMBICORT [Concomitant]
  3. BRICANYL [Concomitant]
  4. INSULIN [Concomitant]

REACTIONS (2)
  - Premature labour [Unknown]
  - Exposure during pregnancy [Unknown]
